FAERS Safety Report 8076829-8 (Version None)
Quarter: 2012Q1

REPORT INFORMATION
  Report Type: 
  Country: None (occurrence: None)
  Receive Date: 20120127
  Receipt Date: 20120118
  Transmission Date: 20120608
  Serious: Yes (Hospitalization, Disabling)
  Sender: FDA-Public Use
  Company Number: US-MERCK-1106USA03115

PATIENT
  Age: 59 Year
  Sex: Female
  Weight: 68 kg

DRUGS (14)
  1. DONNATAL [Concomitant]
     Route: 065
     Dates: start: 19990401
  2. KLONOPIN [Concomitant]
     Route: 065
     Dates: start: 19990401
  3. PATANOL [Concomitant]
     Route: 065
     Dates: start: 19920901
  4. PREMARIN [Concomitant]
     Route: 065
     Dates: start: 19900101, end: 20020101
  5. NEURONTIN [Concomitant]
     Route: 065
     Dates: start: 19990601
  6. VITAMINS (UNSPECIFIED) [Concomitant]
     Route: 065
  7. GLEEVEC [Concomitant]
     Route: 065
     Dates: start: 19991201
  8. ALENDRONATE SODIUM [Suspect]
     Route: 048
     Dates: start: 20081101
  9. PRILOSEC [Concomitant]
     Route: 065
     Dates: start: 19921001
  10. VERAPAMIL [Concomitant]
     Route: 065
     Dates: start: 20021001
  11. FOSAMAX [Suspect]
     Indication: OSTEOPENIA
     Route: 048
     Dates: start: 20020713, end: 20090701
  12. ZOLOFT [Concomitant]
     Route: 065
     Dates: start: 19990501
  13. LOMOTIL [Concomitant]
     Route: 065
     Dates: start: 19990401
  14. IMITREX [Concomitant]
     Route: 065
     Dates: start: 19991101, end: 20060101

REACTIONS (29)
  - VISION BLURRED [None]
  - FEMUR FRACTURE [None]
  - BREAST NEOPLASM [None]
  - DERMATITIS [None]
  - SCIATICA [None]
  - NASAL SEPTUM DEVIATION [None]
  - OSTEOPOROSIS [None]
  - ARTHRALGIA [None]
  - VITAMIN D DEFICIENCY [None]
  - DRY MOUTH [None]
  - HYPERTRIGLYCERIDAEMIA [None]
  - PALPITATIONS [None]
  - JOINT HYPEREXTENSION [None]
  - SWELLING [None]
  - EXOSTOSIS [None]
  - MITRAL VALVE CALCIFICATION [None]
  - SLEEP APNOEA SYNDROME [None]
  - MUSCLE SPASMS [None]
  - DYSPHAGIA [None]
  - LIGAMENT SPRAIN [None]
  - NON-CARDIAC CHEST PAIN [None]
  - UPPER RESPIRATORY TRACT INFECTION [None]
  - EYELID OEDEMA [None]
  - LOW TURNOVER OSTEOPATHY [None]
  - PERICARDIAL EFFUSION [None]
  - BURSITIS [None]
  - JOINT EFFUSION [None]
  - DYSPHONIA [None]
  - FALL [None]
